FAERS Safety Report 23616490 (Version 1)
Quarter: 2024Q1

REPORT INFORMATION
  Report Type: Spontaneous
  Country: PT (occurrence: PT)
  Receive Date: 20240311
  Receipt Date: 20240311
  Transmission Date: 20240410
  Serious: Yes (Hospitalization, Other)
  Sender: FDA-Public Use
  Company Number: PT-Accord-411484

PATIENT
  Age: 78 Year
  Sex: Female

DRUGS (1)
  1. ATROPINE SULFATE [Suspect]
     Active Substance: ATROPINE SULFATE
     Indication: Presyncope
     Route: 042

REACTIONS (2)
  - Ventricular extrasystoles [Recovered/Resolved]
  - Pulmonary oedema [Recovered/Resolved]
